FAERS Safety Report 12882176 (Version 1)
Quarter: 2016Q4

REPORT INFORMATION
  Report Type: Spontaneous
  Country: US (occurrence: US)
  Receive Date: 20161025
  Receipt Date: 20161025
  Transmission Date: 20170207
  Serious: Yes (Other)
  Sender: FDA-Public Use
  Company Number: US-PFIZER INC-2016495387

PATIENT
  Age: 55 Year
  Sex: Female

DRUGS (1)
  1. LYRICA [Suspect]
     Active Substance: PREGABALIN
     Dosage: UNK

REACTIONS (5)
  - Multiple sclerosis [Unknown]
  - Nausea [Recovered/Resolved with Sequelae]
  - Pain [Unknown]
  - Somnolence [Unknown]
  - Memory impairment [Recovered/Resolved with Sequelae]
